FAERS Safety Report 6537531-4 (Version None)
Quarter: 2010Q1

REPORT INFORMATION
  Report Type: 
  Country: None (occurrence: None)
  Receive Date: 20100114
  Receipt Date: 20100111
  Transmission Date: 20100710
  Serious: Yes (Hospitalization, Other)
  Sender: FDA-Public Use
  Company Number: US-ELI_LILLY_AND_COMPANY-US200912003184

PATIENT
  Age: 70 Year
  Sex: Female

DRUGS (5)
  1. ALIMTA [Suspect]
     Indication: NON-SMALL CELL LUNG CANCER
     Dosage: 500 MG/M2, UNK
     Route: 042
  2. ALIMTA [Suspect]
     Dosage: 100 MG, UNK
  3. CISPLATIN [Concomitant]
     Indication: NON-SMALL CELL LUNG CANCER
  4. FOLATE [Concomitant]
  5. VITAMIN B-12 [Concomitant]

REACTIONS (2)
  - PLEURAL EFFUSION [None]
  - RENAL FAILURE ACUTE [None]
